FAERS Safety Report 4389312-8 (Version None)
Quarter: 2004Q3

REPORT INFORMATION
  Report Type: 
  Country: None (occurrence: None)
  Receive Date: 20040702
  Receipt Date: 20040511
  Transmission Date: 20050211
  Serious: Yes (Other)
  Sender: FDA-Public Use
  Company Number: US-ROCHE-367433

PATIENT
  Age: 61 Year
  Sex: Male
  Weight: 95.3 kg

DRUGS (9)
  1. PEG-INTERFERON ALFA 2A (RO 25-8310) [Suspect]
     Route: 058
     Dates: start: 20010915, end: 20020615
  2. RIBAVIRIN [Suspect]
     Route: 048
     Dates: start: 20010915, end: 20020615
  3. EFFEXOR [Concomitant]
     Dosage: TAKEN EVERY DAY
     Route: 048
  4. TRAZODONE HCL [Concomitant]
     Dosage: TAKEN EVERY DAY
     Route: 048
  5. LORAZEPAM [Concomitant]
     Route: 048
  6. OXYCODONE [Concomitant]
  7. UNKNOWN MEDICATION [Concomitant]
     Dosage: DRUG NAME: ARANDEN
  8. CARDIZEM [Concomitant]
  9. ATENOLOL [Concomitant]
     Dosage: TAKEN DAILY

REACTIONS (3)
  - FACIAL PALSY [None]
  - MEMORY IMPAIRMENT [None]
  - SPEECH DISORDER [None]
